FAERS Safety Report 23085178 (Version 2)
Quarter: 2024Q1

REPORT INFORMATION
  Report Type: Spontaneous
  Country: DE (occurrence: DE)
  Receive Date: 20231019
  Receipt Date: 20240219
  Transmission Date: 20240410
  Serious: Yes (Death, Hospitalization, Other)
  Sender: FDA-Public Use
  Company Number: DE-002147023-NVSC2021DE298902

PATIENT
  Age: 50 Year
  Sex: Male

DRUGS (1)
  1. MAYZENT [Suspect]
     Active Substance: SIPONIMOD
     Indication: Secondary progressive multiple sclerosis
     Dosage: 2 MG
     Route: 065
     Dates: start: 20211127

REACTIONS (20)
  - Cardiac arrest [Fatal]
  - Amnesia [Not Recovered/Not Resolved]
  - Panic attack [Recovered/Resolved]
  - Device difficult to use [Not Recovered/Not Resolved]
  - Dysarthria [Unknown]
  - Hypoxia [Unknown]
  - Multiple sclerosis [Unknown]
  - Paralysis [Unknown]
  - Nausea [Unknown]
  - Vomiting [Unknown]
  - Pain in extremity [Unknown]
  - Dry mouth [Unknown]
  - Personality change [Unknown]
  - Delusional perception [Unknown]
  - Fatigue [Not Recovered/Not Resolved]
  - Fall [Unknown]
  - Dizziness [Unknown]
  - Micturition urgency [Unknown]
  - Disorientation [Unknown]
  - Inappropriate schedule of product administration [Unknown]

NARRATIVE: CASE EVENT DATE: 20210101
